FAERS Safety Report 8184724-9 (Version None)
Quarter: 2012Q1

REPORT INFORMATION
  Report Type: 
  Country: None (occurrence: None)
  Receive Date: 20120305
  Receipt Date: 20120305
  Transmission Date: 20120608
  Serious: Yes (Hospitalization)
  Sender: FDA-Public Use
  Company Number: None

PATIENT
  Age: 69 Year
  Sex: Male
  Weight: 86.182 kg

DRUGS (1)
  1. SIMVASTATIN [Suspect]
     Indication: HYPERCHOLESTEROLAEMIA
     Dosage: 40MG
     Route: 048

REACTIONS (8)
  - EXOSTOSIS [None]
  - NO THERAPEUTIC RESPONSE [None]
  - CONFUSIONAL STATE [None]
  - CONDITION AGGRAVATED [None]
  - MUSCLE SPASMS [None]
  - DRY MOUTH [None]
  - GAIT DISTURBANCE [None]
  - BACK PAIN [None]
